FAERS Safety Report 11001746 (Version 2)
Quarter: 2015Q2

REPORT INFORMATION
  Report Type: Report from Study
  Country: US (occurrence: US)
  Receive Date: 20150408
  Receipt Date: 20150413
  Transmission Date: 20150821
  Serious: Yes (Death)
  Sender: FDA-Public Use
  Company Number: US-SA-2015SA042367

PATIENT

DRUGS (1)
  1. PLERIXAFOR [Suspect]
     Active Substance: PLERIXAFOR
     Indication: HAEMATOPOIETIC STEM CELL MOBILISATION
     Route: 065
     Dates: start: 20141226

REACTIONS (1)
  - Respiratory failure [Fatal]

NARRATIVE: CASE EVENT DATE: 20150327
